FAERS Safety Report 6467343-1 (Version None)
Quarter: 2009Q4

REPORT INFORMATION
  Report Type: 
  Country: None (occurrence: None)
  Receive Date: 20091202
  Receipt Date: 20091126
  Transmission Date: 20100525
  Serious: Yes (Hospitalization)
  Sender: FDA-Public Use
  Company Number: FR-BRISTOL-MYERS SQUIBB COMPANY-14865018

PATIENT
  Age: 53 Year
  Sex: Male

DRUGS (11)
  1. ERBITUX [Suspect]
     Indication: ANAL CANCER
     Dosage: 09OCT08:915MG 06NOV08:915MG 03DEC08:915MG 24DEC08:915MG
     Route: 042
     Dates: start: 20081009, end: 20081009
  2. CAMPTOSAR [Suspect]
     Indication: ANAL CANCER
     Dosage: 09OCT08: 300MG 06NOV08,03DEC08,24DEC08: 274MG.
     Route: 042
     Dates: start: 20081009, end: 20081009
  3. FLUOROURACIL [Suspect]
     Indication: ANAL CANCER
     Dosage: 09OCT08: 5120MG 06NOV08,03DEC08,24DEC08: 4390MG
     Route: 042
     Dates: start: 20081009, end: 20081009
  4. FOLINIC ACID [Concomitant]
     Indication: ANAL CANCER
     Route: 042
  5. TRAMADOL HCL [Concomitant]
     Dosage: FORM=TABS
     Route: 048
  6. ORACILLINE [Concomitant]
  7. BACTRIM [Concomitant]
  8. ZELITREX [Concomitant]
  9. ATARAX [Concomitant]
  10. TETRAZEPAM [Concomitant]
  11. DUPHALAC [Concomitant]

REACTIONS (2)
  - BONE MARROW FAILURE [None]
  - DIARRHOEA [None]
